FAERS Safety Report 7650657-7 (Version None)
Quarter: 2011Q3

REPORT INFORMATION
  Report Type: 
  Country: None (occurrence: None)
  Receive Date: 20110802
  Receipt Date: 20110725
  Transmission Date: 20111222
  Serious: Yes (Death)
  Sender: FDA-Public Use
  Company Number: NL-JNJFOC-20110800046

PATIENT

DRUGS (47)
  1. DOXORUBICIN HYDROCHLORIDE [Suspect]
     Route: 042
  2. CYCLOPHOSPHAMIDE [Suspect]
     Indication: T-CELL LYMPHOMA
     Route: 042
  3. CYCLOPHOSPHAMIDE [Suspect]
     Route: 042
  4. PREDNISONE [Suspect]
     Route: 048
  5. MABCAMPATH [Suspect]
     Route: 058
  6. VALACICLOVIR [Concomitant]
     Indication: PROPHYLAXIS
     Dosage: PNEUMOCYSTIS JIROVECI AND HERPES INFECTIONS PROPHYLAXIS
     Route: 065
  7. ACETAMINOPHEN [Concomitant]
     Indication: PREMEDICATION
     Route: 065
  8. DOXORUBICIN HYDROCHLORIDE [Suspect]
     Route: 042
  9. VINCRISTINE [Suspect]
     Route: 042
  10. PREDNISONE [Suspect]
     Indication: T-CELL LYMPHOMA
     Route: 048
  11. MABCAMPATH [Suspect]
     Route: 058
  12. FLUCONAZOLE [Concomitant]
     Indication: PROPHYLAXIS
     Dosage: PNEUMOCYSTIS JIROVECI AND HERPES INFECTIONS PROPHYLAXIS
     Route: 065
  13. DOXORUBICIN HYDROCHLORIDE [Suspect]
     Route: 042
  14. CYCLOPHOSPHAMIDE [Suspect]
     Route: 042
  15. PREDNISONE [Suspect]
     Route: 048
  16. MABCAMPATH [Suspect]
     Dosage: 1ST DOSE- 3 MG, 2ND DOSE- 2 MG. DURING FIRST INJECTION, OBSERVED WITH INTRAVENOUS LINE FOR 2 HOURS
     Route: 058
  17. ALLOPURINOL [Concomitant]
     Indication: PROPHYLAXIS
     Route: 065
  18. DOXORUBICIN HYDROCHLORIDE [Suspect]
     Route: 042
  19. CYCLOPHOSPHAMIDE [Suspect]
     Route: 042
  20. VINCRISTINE [Suspect]
     Route: 042
  21. PREDNISONE [Suspect]
     Route: 048
  22. MABCAMPATH [Suspect]
     Route: 058
  23. DOXORUBICIN HYDROCHLORIDE [Suspect]
     Route: 042
  24. DOXORUBICIN HYDROCHLORIDE [Suspect]
     Route: 042
  25. VINCRISTINE [Suspect]
     Route: 042
  26. PREDNISONE [Suspect]
     Route: 048
  27. PEGFILGRASTIM [Concomitant]
     Indication: PRODUCT USED FOR UNKNOWN INDICATION
     Route: 058
  28. COTRIM [Concomitant]
     Indication: PROPHYLAXIS
     Dosage: PNEUMOCYSTIS JIROVECI AND HERPES INFECTIONS PROPHYLAXIS
     Route: 065
  29. DOXORUBICIN HYDROCHLORIDE [Suspect]
     Indication: T-CELL LYMPHOMA
     Route: 042
  30. CYCLOPHOSPHAMIDE [Suspect]
     Route: 042
  31. VINCRISTINE [Suspect]
     Dosage: A MAXIMUM DOSE OF 2 MG
     Route: 042
  32. MABCAMPATH [Suspect]
     Route: 058
  33. ANTIHISTAMINES [Concomitant]
     Indication: PREMEDICATION
     Route: 065
  34. CYCLOPHOSPHAMIDE [Suspect]
     Route: 042
  35. CYCLOPHOSPHAMIDE [Suspect]
     Route: 042
  36. VINCRISTINE [Suspect]
     Route: 042
  37. VINCRISTINE [Suspect]
     Route: 042
  38. PREDNISONE [Suspect]
     Route: 048
  39. MABCAMPATH [Suspect]
     Route: 058
  40. DOXORUBICIN HYDROCHLORIDE [Suspect]
     Route: 042
  41. CYCLOPHOSPHAMIDE [Suspect]
     Route: 042
  42. VINCRISTINE [Suspect]
     Indication: T-CELL LYMPHOMA
     Route: 042
  43. VINCRISTINE [Suspect]
     Route: 042
  44. PREDNISONE [Suspect]
     Route: 048
  45. PREDNISONE [Suspect]
     Route: 048
  46. MABCAMPATH [Suspect]
     Indication: T-CELL LYMPHOMA
     Route: 058
  47. MABCAMPATH [Suspect]
     Route: 058

REACTIONS (1)
  - INFECTION [None]
